FAERS Safety Report 9348247 (Version 3)
Quarter: 2013Q4

REPORT INFORMATION
  Report Type: Report from Study
  Country: GB (occurrence: GB)
  Receive Date: 20130614
  Receipt Date: 20131108
  Transmission Date: 20140711
  Serious: Yes (Hospitalization)
  Sender: FDA-Public Use
  Company Number: GB-ROCHE-1236672

PATIENT
  Age: 63 Year
  Sex: Female
  Weight: 118.2 kg

DRUGS (8)
  1. BEVACIZUMAB [Suspect]
     Indication: COLON CANCER
     Route: 042
     Dates: start: 20130515
  2. LANSOPRAZOLE [Concomitant]
     Route: 048
     Dates: start: 2006
  3. AMLODIPINE [Concomitant]
     Indication: MYOCARDIAL INFARCTION
     Route: 048
     Dates: start: 2003
  4. QUININE SULFATE [Concomitant]
     Indication: MUSCLE SPASMS
     Route: 048
     Dates: start: 2010
  5. SIMVASTATIN [Concomitant]
     Indication: MYOCARDIAL INFARCTION
     Route: 048
     Dates: start: 2003
  6. ASPIRIN [Concomitant]
     Indication: MYOCARDIAL INFARCTION
     Route: 048
     Dates: start: 2003
  7. GABAPENTIN [Concomitant]
     Indication: MUSCLE SPASMS
     Route: 048
     Dates: start: 2009
  8. LOSARTAN [Concomitant]
     Indication: MYOCARDIAL INFARCTION
     Route: 048
     Dates: start: 2003

REACTIONS (1)
  - Gastritis [Recovered/Resolved]
